FAERS Safety Report 19148953 (Version 1)
Quarter: 2021Q2

REPORT INFORMATION
  Report Type: Spontaneous
  Country: JP (occurrence: JP)
  Receive Date: 20210416
  Receipt Date: 20210416
  Transmission Date: 20210717
  Serious: Yes (Other)
  Sender: FDA-Public Use
  Company Number: JP-PFIZER INC-2021377909

PATIENT
  Age: 67 Year
  Sex: Male
  Weight: 60 kg

DRUGS (14)
  1. OXALIPLATIN. [Suspect]
     Active Substance: OXALIPLATIN
     Dosage: UNK
     Route: 041
     Dates: start: 20201208, end: 20201208
  2. TELTHIA [Concomitant]
     Dosage: 1 DF, 1X/DAY
  3. CAPECITABINE. [Suspect]
     Active Substance: CAPECITABINE
     Indication: COLON CANCER
     Dosage: 1500 MG, 2X/DAY
     Route: 048
     Dates: start: 20201121
  4. BEVACIZUMAB PFIZER [Suspect]
     Active Substance: BEVACIZUMAB
     Dosage: UNK
     Route: 041
     Dates: start: 20201208, end: 20201208
  5. CAPECITABINE. [Suspect]
     Active Substance: CAPECITABINE
     Dosage: 1500 MG, 2X/DAY
     Route: 048
     Dates: start: 20201208
  6. CILNIDIPINE [Concomitant]
     Active Substance: CILNIDIPINE
     Dosage: 10 MG, 1X/DAY
  7. PYRIDOXAL [Concomitant]
     Active Substance: PYRIDOXAL
     Dosage: 10 MG, 3X/DAY
     Dates: start: 20201117, end: 20210216
  8. CAPECITABINE. [Suspect]
     Active Substance: CAPECITABINE
     Dosage: 1500 MG, 2X/DAY
     Route: 048
     Dates: start: 20210105
  9. OXALIPLATIN. [Suspect]
     Active Substance: OXALIPLATIN
     Dosage: UNK
     Route: 041
     Dates: start: 20210105, end: 20210105
  10. MAGNESIUM OXIDE. [Concomitant]
     Active Substance: MAGNESIUM OXIDE
     Dosage: 330 MG, 3X/DAY
     Route: 048
     Dates: start: 20201117
  11. BEVACIZUMAB PFIZER [Suspect]
     Active Substance: BEVACIZUMAB
     Indication: COLON CANCER
     Dosage: UNK UNK, 1X/DAY
     Route: 041
     Dates: start: 20201121, end: 20201121
  12. BEVACIZUMAB PFIZER [Suspect]
     Active Substance: BEVACIZUMAB
     Dosage: UNK
     Route: 041
     Dates: start: 20210105, end: 20210105
  13. OXALIPLATIN. [Suspect]
     Active Substance: OXALIPLATIN
     Dosage: UNK UNK, 1X/DAY
     Route: 041
     Dates: start: 20201121, end: 20201121
  14. ALLOPURINOL. [Concomitant]
     Active Substance: ALLOPURINOL
     Dosage: 100 MG, 1X/DAY

REACTIONS (5)
  - Malaise [Unknown]
  - Diarrhoea [Recovering/Resolving]
  - Neuropathy peripheral [Recovered/Resolved]
  - Palmar-plantar erythrodysaesthesia syndrome [Recovered/Resolved]
  - Nausea [Recovering/Resolving]

NARRATIVE: CASE EVENT DATE: 20201121
